FAERS Safety Report 10032778 (Version 2)
Quarter: 2014Q1

REPORT INFORMATION
  Report Type: Report from Study
  Country: SE (occurrence: SE)
  Receive Date: 20140324
  Receipt Date: 20140326
  Transmission Date: 20141002
  Serious: Yes (Life-Threatening)
  Sender: FDA-Public Use
  Company Number: SE-UCBSA-114773

PATIENT
  Age: 68 Year
  Sex: Male

DRUGS (6)
  1. CIMZIA [Suspect]
     Indication: RHEUMATOID ARTHRITIS
     Dates: start: 20130227, end: 20140221
  2. CIMZIA [Suspect]
     Indication: COLITIS ULCERATIVE
     Dates: start: 20130227, end: 20140221
  3. CIMZIA [Suspect]
     Indication: ARTHRITIS ENTEROPATHIC
     Dates: start: 20130227, end: 20140221
  4. METHOTREXATE [Suspect]
     Indication: ARTHRITIS ENTEROPATHIC
     Dosage: 12.5, 12.5 MG
     Dates: start: 20051230, end: 20140221
  5. METHOTREXATE [Suspect]
     Indication: COLITIS ULCERATIVE
     Dosage: 12.5, 12.5 MG
     Dates: start: 20051230, end: 20140221
  6. SALAZOPYRIN (A07EC01) [Suspect]
     Dosage: 3000, 3000 MG
     Dates: start: 20090303, end: 20140221

REACTIONS (1)
  - Adenocarcinoma [Not Recovered/Not Resolved]
